FAERS Safety Report 4840099-1 (Version None)
Quarter: 2005Q4

REPORT INFORMATION
  Report Type: 
  Country: None (occurrence: None)
  Receive Date: 20051125
  Receipt Date: 20051117
  Transmission Date: 20060501
  Serious: Yes (Hospitalization)
  Sender: FDA-Public Use
  Company Number: S05-USA-02268-01

PATIENT
  Age: 44 Year
  Sex: Female

DRUGS (2)
  1. LEXAPRO [Suspect]
     Indication: DEPRESSION
     Dates: start: 20040901, end: 20050506
  2. HORMONES (NOS) [Concomitant]

REACTIONS (1)
  - BIPOLAR I DISORDER [None]
